FAERS Safety Report 11357839 (Version 1)
Quarter: 2015Q3

REPORT INFORMATION
  Report Type: Spontaneous
  Country: US (occurrence: US)
  Receive Date: 20150803
  Receipt Date: 20150803
  Transmission Date: 20151125
  Serious: No
  Sender: FDA-Public Use
  Company Number: US-ELI_LILLY_AND_COMPANY-US201102002257

PATIENT
  Age: 80 Year
  Sex: Female

DRUGS (2)
  1. ZYPREXA [Suspect]
     Active Substance: OLANZAPINE
     Indication: PSYCHOTIC DISORDER
     Dosage: 17.5 MG, UNK
  2. ZYPREXA [Suspect]
     Active Substance: OLANZAPINE
     Dosage: 2.5 MG, UNK

REACTIONS (4)
  - Abnormal behaviour [Unknown]
  - Aggression [Unknown]
  - Impulsive behaviour [Unknown]
  - Agitation [Unknown]

NARRATIVE: CASE EVENT DATE: 20110203
